FAERS Safety Report 20417655 (Version 2)
Quarter: 2023Q1

REPORT INFORMATION
  Report Type: Report from Study
  Country: EG (occurrence: EG)
  Receive Date: 20220202
  Receipt Date: 20230301
  Transmission Date: 20230418
  Serious: Yes (Other)
  Sender: FDA-Public Use
  Company Number: EG-NOVARTISPH-NVSC2022EG022162

PATIENT
  Age: 11 Year
  Sex: Female

DRUGS (4)
  1. GILENYA [Suspect]
     Active Substance: FINGOLIMOD HYDROCHLORIDE
     Indication: Multiple sclerosis
     Dosage: 0.5 MG, QD
     Route: 048
     Dates: start: 20210306
  2. PANADOL [Concomitant]
     Active Substance: ACETAMINOPHEN
     Indication: Headache
     Dosage: UNK, ONE TAB PER DAY WHEN NEEDED
     Route: 048
     Dates: start: 2013
  3. OMEGA 3 PLUS [Concomitant]
     Indication: Hypovitaminosis
     Dosage: UNK, ONE CAP IF NEED
     Route: 065
     Dates: start: 2013
  4. PEDICAL [Concomitant]
     Indication: Mineral supplementation
     Dosage: UNK, QD
     Route: 065
     Dates: start: 2013

REACTIONS (2)
  - Disturbance in attention [Not Recovered/Not Resolved]
  - Headache [Recovered/Resolved]

NARRATIVE: CASE EVENT DATE: 20210306
